FAERS Safety Report 5052013-7 (Version None)
Quarter: 2006Q3

REPORT INFORMATION
  Report Type: 
  Country: None (occurrence: None)
  Receive Date: 20060711
  Receipt Date: 20060626
  Transmission Date: 20061208
  Serious: Yes (Other)
  Sender: FDA-Public Use
  Company Number: 2006S1006064

PATIENT
  Age: 56 Year
  Sex: Female
  Weight: 83.9154 kg

DRUGS (1)
  1. LISINOPRIL [Suspect]
     Indication: HYPERTENSION
     Dosage: 20 MG; QD; PO
     Route: 048
     Dates: start: 20051201

REACTIONS (1)
  - OTOSCLEROSIS [None]
